FAERS Safety Report 8771467 (Version 1)
Quarter: 2012Q4

REPORT INFORMATION
  Report Type: 
  Country: GB (occurrence: GB)
  Receive Date: 20120905
  Receipt Date: 20120905
  Transmission Date: 20130627
  Serious: Yes (Other)
  Sender: FDA-Public Use
  Company Number: GB-WATSON-2012-15359

PATIENT
  Sex: Male
  Weight: 100 kg

DRUGS (1)
  1. MIRTAZAPINE (UNKNOWN) [Suspect]
     Indication: PRODUCT USED FOR UNKNOWN INDICATION
     Dosage: 15 mg, unknown
     Route: 048

REACTIONS (4)
  - Anger [Recovered/Resolved]
  - Weight increased [Recovered/Resolved]
  - Hypersomnia [Recovering/Resolving]
  - Disturbance in attention [Recovered/Resolved]
